FAERS Safety Report 8076760-8 (Version None)
Quarter: 2011Q4

REPORT INFORMATION
  Report Type: 
  Country: None (occurrence: None)
  Receive Date: 20111221
  Receipt Date: 20110228
  Transmission Date: 20120403
  Serious: Yes (Other)
  Sender: FDA-Public Use
  Company Number: PHHY2011US14516

PATIENT
  Age: 34 Year
  Sex: Female
  Weight: 68.0396 kg

DRUGS (11)
  1. EXJADE [Suspect]
     Indication: IRON OVERLOAD
     Dosage: 500MG, QD, ORAL
     Route: 048
     Dates: start: 20110217, end: 20110219
  2. EXJADE [Suspect]
     Indication: ANAEMIA HAEMOLYTIC AUTOIMMUNE
     Dosage: 500MG, QD, ORAL
     Route: 048
     Dates: start: 20110217, end: 20110219
  3. OXYCODONE AND ACETAMINOPHEN [Concomitant]
  4. MS CONTIN [Suspect]
     Indication: ABDOMINAL PAIN
     Dosage: 15 MG, Q12H, ORAL
     Route: 048
     Dates: start: 20030501
  5. WARFARIN SODIUM [Concomitant]
  6. METHOCARBAMOL [Concomitant]
  7. FOLIC ACID [Concomitant]
  8. OXYCODONE HCL [Suspect]
     Indication: ABDOMINAL PAIN
     Dosage: 20 MG, PRN, ORAL
     Route: 048
     Dates: start: 20030501
  9. VANCOMYCIN [Concomitant]
  10. ABILIFY [Concomitant]
  11. LYRICA [Concomitant]

REACTIONS (6)
  - DIARRHOEA [None]
  - URINARY RETENTION [None]
  - ABDOMINAL PAIN [None]
  - VOMITING [None]
  - NAUSEA [None]
  - RENAL IMPAIRMENT [None]
